FAERS Safety Report 15231537 (Version 1)
Quarter: 2018Q3

REPORT INFORMATION
  Report Type: Spontaneous
  Country: FR (occurrence: FR)
  Receive Date: 20180802
  Receipt Date: 20180802
  Transmission Date: 20181010
  Serious: Yes (Other)
  Sender: FDA-Public Use
  Company Number: FR-TEVA-2018-FR-935532

PATIENT
  Sex: Female

DRUGS (2)
  1. ATORVASTATINE TEVA SANTE 10 MG [Suspect]
     Active Substance: ATORVASTATIN
     Dates: start: 201806
  2. LEVOTHYROX [Concomitant]
     Active Substance: LEVOTHYROXINE

REACTIONS (3)
  - Muscle fatigue [Unknown]
  - Gait disturbance [Recovered/Resolved]
  - Eye pain [Recovered/Resolved]
